FAERS Safety Report 7086161-7 (Version None)
Quarter: 2010Q4

REPORT INFORMATION
  Report Type: 
  Country: None (occurrence: None)
  Receive Date: 20101105
  Receipt Date: 20101026
  Transmission Date: 20110411
  Serious: Yes (Hospitalization)
  Sender: FDA-Public Use
  Company Number: US-JNJFOC-20100508817

PATIENT
  Sex: Female
  Weight: 98.43 kg

DRUGS (2)
  1. TYLENOL COLD MULTI-SYMPTOM SEVERE DAYTIME COOL BURST [Suspect]
     Indication: NASOPHARYNGITIS
     Route: 048
  2. MOBIC [Concomitant]
     Indication: ARTHRALGIA

REACTIONS (10)
  - ASPARTATE AMINOTRANSFERASE INCREASED [None]
  - BLADDER SPASM [None]
  - BLOOD GLUCOSE INCREASED [None]
  - DYSURIA [None]
  - IMPAIRED WORK ABILITY [None]
  - MONOCYTE COUNT INCREASED [None]
  - NAUSEA [None]
  - URETHRAL STENOSIS [None]
  - URINARY RETENTION [None]
  - URINARY TRACT INFECTION [None]
